FAERS Safety Report 4335345-7 (Version None)
Quarter: 2004Q2

REPORT INFORMATION
  Report Type: 
  Country: None (occurrence: None)
  Receive Date: 20040409
  Receipt Date: 20040112
  Transmission Date: 20050107
  Serious: Yes (Other)
  Sender: FDA-Public Use
  Company Number: PHEH2004US00795

PATIENT
  Age: 60 Year
  Sex: Male
  Weight: 91 kg

DRUGS (10)
  1. GLEEVEC [Suspect]
     Indication: GASTROINTESTINAL STROMAL TUMOUR
     Dosage: 400 MG, QD
     Route: 048
     Dates: start: 20000303
  2. GLEEVEC [Suspect]
     Dosage: 400 MG, BID
     Route: 048
     Dates: start: 20030319
  3. REGULAR INSULIN [Concomitant]
     Dosage: 20 IU, UNK
  4. NPH INSULIN [Concomitant]
     Dosage: 42 IU, UNK
  5. PRAVACHOL [Concomitant]
     Dosage: 20 MG, UNK
  6. ENALAPRIL MALEATE [Concomitant]
     Dosage: 5 MG, UNK
  7. FOLIC ACID [Concomitant]
     Dosage: 1 MG, UNK
  8. ASPIRIN [Concomitant]
  9. ACETAMINOPHEN [Concomitant]
     Dosage: 500 MG, UNK
  10. METRONIDAZOLE [Concomitant]
     Dosage: 750 MG, UNK

REACTIONS (3)
  - CHEST PAIN [None]
  - MEGACOLON ACQUIRED [None]
  - TREATMENT NONCOMPLIANCE [None]
